FAERS Safety Report 17338351 (Version 4)
Quarter: 2020Q4

REPORT INFORMATION
  Report Type: Spontaneous
  Country: ES (occurrence: ES)
  Receive Date: 20200129
  Receipt Date: 20201224
  Transmission Date: 20210113
  Serious: Yes (Hospitalization, Other)
  Sender: FDA-Public Use
  Company Number: NVSC2020ES020269

PATIENT
  Age: 31 Week
  Sex: Male

DRUGS (3)
  1. OCTREOTIDE. [Suspect]
     Active Substance: OCTREOTIDE
  2. OCTREOTIDE. [Suspect]
     Active Substance: OCTREOTIDE
     Indication: HYPERINSULINISM
     Dosage: 8.9 MG/KG, QID
     Route: 065
  3. OCTREOTIDE. [Suspect]
     Active Substance: OCTREOTIDE
     Indication: CONGENITAL HYPERINSULINAEMIC HYPOGLYCAEMIA
     Dosage: 8.9 ?G/KG, QD DIVIDED INTO FOUR DAILY DOSES
     Route: 058
     Dates: start: 20190323

REACTIONS (6)
  - Vitamin K deficiency [Recovered/Resolved]
  - Contusion [Unknown]
  - Cholelithiasis [Recovered/Resolved]
  - Skin haemorrhage [Unknown]
  - Pancreatic failure [Recovering/Resolving]
  - Haemorrhage [Unknown]

NARRATIVE: CASE EVENT DATE: 20190513
